FAERS Safety Report 16918114 (Version 1)
Quarter: 2019Q4

REPORT INFORMATION
  Report Type: Spontaneous
  Country: US (occurrence: US)
  Receive Date: 20190822
  Receipt Date: 20190822
  Transmission Date: 20200122
  Serious: No
  Sender: FDA-Public Use
  Company Number: None

PATIENT
  Age: 17 Month

DRUGS (2)
  1. SODIUM CHLORIDE 0.9% SOLUTION [Suspect]
     Active Substance: SODIUM CHLORIDE
  2. METRONIDAZOLE. [Suspect]
     Active Substance: METRONIDAZOLE

REACTIONS (2)
  - Wrong product administered [None]
  - Product appearance confusion [None]
